FAERS Safety Report 10400950 (Version 1)
Quarter: 2014Q3

REPORT INFORMATION
  Report Type: Spontaneous
  Country: US (occurrence: US)
  Receive Date: 20140821
  Receipt Date: 20140821
  Transmission Date: 20150326
  Serious: Yes (Death, Other)
  Sender: FDA-Public Use
  Company Number: US-GILEAD-2014-0112476

PATIENT
  Age: 66 Year
  Sex: Female
  Weight: 79.37 kg

DRUGS (10)
  1. SOVALDI [Suspect]
     Active Substance: SOFOSBUVIR
     Indication: HEPATITIS C
     Dosage: 400 MG, UNK
     Route: 048
     Dates: start: 201406
  2. MEGAOXIOD [Concomitant]
  3. PROCARDIA [Suspect]
     Active Substance: NIFEDIPINE
     Indication: PRODUCT USED FOR UNKNOWN INDICATION
     Dosage: 10 MG, UNK
     Route: 048
  4. PRILOSEC [Suspect]
     Active Substance: OMEPRAZOLE MAGNESIUM
     Indication: PRODUCT USED FOR UNKNOWN INDICATION
     Dosage: 40 MG, UNK
     Route: 048
  5. MIRALAX [Concomitant]
     Active Substance: POLYETHYLENE GLYCOL 3350
  6. OLYSIO [Concomitant]
     Active Substance: SIMEPREVIR
     Indication: HEPATITIS C
     Dosage: UNK
     Dates: start: 201406
  7. MULTIVITAMIN                       /07504101/ [Suspect]
     Active Substance: VITAMINS
     Indication: PRODUCT USED FOR UNKNOWN INDICATION
     Route: 065
  8. VALTRAX [Concomitant]
  9. ASPIRIN                            /00002701/ [Suspect]
     Active Substance: ASPIRIN
     Indication: DIABETES MELLITUS
     Dosage: 81 MG, UNK
     Route: 048
  10. LEXAPRO [Suspect]
     Active Substance: ESCITALOPRAM OXALATE
     Indication: PRODUCT USED FOR UNKNOWN INDICATION
     Dosage: 10 MG, UNK
     Route: 048

REACTIONS (1)
  - Death [Fatal]

NARRATIVE: CASE EVENT DATE: 20140630
